FAERS Safety Report 13025112 (Version 1)
Quarter: 2016Q4

REPORT INFORMATION
  Report Type: Report from Study
  Country: FR (occurrence: FR)
  Receive Date: 20161213
  Receipt Date: 20161213
  Transmission Date: 20170207
  Serious: Yes (Hospitalization)
  Sender: FDA-Public Use
  Company Number: FR-ROCHE-1444234

PATIENT
  Age: 49 Year
  Sex: Female
  Weight: 85 kg

DRUGS (23)
  1. TOCILIZUMAB [Suspect]
     Active Substance: TOCILIZUMAB
     Route: 041
     Dates: start: 20120823
  2. SPIRONOLACTONE. [Concomitant]
     Active Substance: SPIRONOLACTONE
  3. TOCILIZUMAB [Suspect]
     Active Substance: TOCILIZUMAB
     Route: 041
     Dates: start: 20120102
  4. TOCILIZUMAB [Suspect]
     Active Substance: TOCILIZUMAB
     Route: 041
     Dates: start: 20120405
  5. TOCILIZUMAB [Suspect]
     Active Substance: TOCILIZUMAB
     Route: 041
     Dates: start: 20110627
  6. TOCILIZUMAB [Suspect]
     Active Substance: TOCILIZUMAB
     Route: 041
     Dates: start: 20120511
  7. CORTANCYL [Concomitant]
     Active Substance: PREDNISONE
     Route: 065
  8. TOCILIZUMAB [Suspect]
     Active Substance: TOCILIZUMAB
     Route: 041
     Dates: start: 20111003
  9. TOCILIZUMAB [Suspect]
     Active Substance: TOCILIZUMAB
     Route: 041
     Dates: start: 20120627
  10. RITUXIMAB [Suspect]
     Active Substance: RITUXIMAB
     Indication: PRODUCT USED FOR UNKNOWN INDICATION
     Route: 041
  11. QUESTRAN [Concomitant]
     Active Substance: CHOLESTYRAMINE
     Route: 065
  12. TOCILIZUMAB [Suspect]
     Active Substance: TOCILIZUMAB
     Indication: RHEUMATOID ARTHRITIS
     Route: 041
     Dates: start: 20110321
  13. TOCILIZUMAB [Suspect]
     Active Substance: TOCILIZUMAB
     Route: 041
     Dates: start: 20110905
  14. TOCILIZUMAB [Suspect]
     Active Substance: TOCILIZUMAB
     Route: 041
     Dates: start: 20120202
  15. PARACETAMOL [Concomitant]
     Active Substance: ACETAMINOPHEN
     Route: 065
  16. TOCILIZUMAB [Suspect]
     Active Substance: TOCILIZUMAB
     Route: 041
     Dates: start: 20110418
  17. TOCILIZUMAB [Suspect]
     Active Substance: TOCILIZUMAB
     Route: 041
     Dates: start: 20110805
  18. TOCILIZUMAB [Suspect]
     Active Substance: TOCILIZUMAB
     Route: 041
     Dates: start: 20120302
  19. UVEDOSE [Concomitant]
     Active Substance: CHOLECALCIFEROL
     Route: 065
  20. NOCTAMIDE [Concomitant]
     Active Substance: LORMETAZEPAM
     Route: 065
  21. TOCILIZUMAB [Suspect]
     Active Substance: TOCILIZUMAB
     Route: 041
     Dates: start: 20111130
  22. DIFFU K [Concomitant]
     Active Substance: POTASSIUM CHLORIDE
     Route: 065
  23. TOCILIZUMAB [Suspect]
     Active Substance: TOCILIZUMAB
     Route: 041
     Dates: start: 20110530

REACTIONS (12)
  - Anterograde amnesia [Recovered/Resolved]
  - Confusional state [Recovered/Resolved]
  - Apical granuloma [Recovered/Resolved]
  - Rash [Recovered/Resolved]
  - Perforated ulcer [Recovered/Resolved]
  - Headache [Not Recovered/Not Resolved]
  - Nausea [Recovered/Resolved]
  - Bronchitis [Recovered/Resolved]
  - Cerebrovascular accident [Recovered/Resolved]
  - Eye irritation [Recovered/Resolved]
  - Ulcerative keratitis [Recovered/Resolved]
  - Headache [Recovered/Resolved]

NARRATIVE: CASE EVENT DATE: 20110418
